FAERS Safety Report 7911445-7 (Version None)
Quarter: 2011Q4

REPORT INFORMATION
  Report Type: 
  Country: None (occurrence: None)
  Receive Date: 20111109
  Receipt Date: 20111026
  Transmission Date: 20120403
  Serious: Yes (Death, Hospitalization, Other)
  Sender: FDA-Public Use
  Company Number: 2011P1009722

PATIENT
  Age: 79 Year
  Sex: Female

DRUGS (2)
  1. PHENYTOIN SODIUM [Suspect]
     Indication: CONVULSION
     Dosage: 100 MG;AM;PO ; 200 MG;HS;PO
     Route: 048
     Dates: start: 20110701, end: 20110911
  2. PHENYTOIN SODIUM [Suspect]
     Indication: CONVULSION
     Dosage: 100 MG;AM;PO ; 200 MG;HS;PO
     Route: 048
     Dates: start: 20110701, end: 20110911

REACTIONS (3)
  - LETHARGY [None]
  - AGGRESSION [None]
  - DRUG RASH WITH EOSINOPHILIA AND SYSTEMIC SYMPTOMS [None]
